FAERS Safety Report 8889965 (Version 1)
Quarter: 2012Q4

REPORT INFORMATION
  Report Type: 
  Country: CA (occurrence: CA)
  Receive Date: 20121107
  Receipt Date: 20121107
  Transmission Date: 20130627
  Serious: Yes (Other)
  Sender: FDA-Public Use
  Company Number: PHHO2005CA11474

PATIENT
  Sex: Female

DRUGS (2)
  1. SANDOSTATIN LAR (PATIENT BASIS) [Suspect]
     Indication: ACROMEGALY
     Dosage: 20 mg, every 4 weeks
     Dates: start: 20040710
  2. DOSTINEX [Concomitant]

REACTIONS (33)
  - Neoplasm malignant [Unknown]
  - Polyp [Unknown]
  - Hypotension [Unknown]
  - Blood pressure decreased [Unknown]
  - Dizziness postural [Unknown]
  - Photopsia [Unknown]
  - Insomnia [Unknown]
  - Occult blood [Unknown]
  - Faeces discoloured [Unknown]
  - Fatigue [Unknown]
  - Headache [Unknown]
  - Arthralgia [Unknown]
  - Dry mouth [Unknown]
  - Lacrimation increased [Unknown]
  - Eye pain [Unknown]
  - Hypersensitivity [Unknown]
  - Nasopharyngitis [Unknown]
  - Back pain [Unknown]
  - Visual impairment [Unknown]
  - Somnolence [Unknown]
  - Haemorrhoids [Unknown]
  - Anxiety [Unknown]
  - Oropharyngeal pain [Unknown]
  - Rheumatic disorder [Unknown]
  - Oral herpes [Unknown]
  - Constipation [Unknown]
  - Asthenia [Unknown]
  - Heart rate decreased [Unknown]
  - Abdominal pain lower [Unknown]
  - Cough [Unknown]
  - Neck pain [Unknown]
  - Abnormal sensation in eye [Unknown]
  - Eye irritation [Unknown]
